FAERS Safety Report 19745516 (Version 1)
Quarter: 2021Q3

REPORT INFORMATION
  Report Type: Spontaneous
  Country: JP (occurrence: JP)
  Receive Date: 20210825
  Receipt Date: 20210825
  Transmission Date: 20211014
  Serious: Yes (Other)
  Sender: FDA-Public Use
  Company Number: JP-ROCHE-2897471

PATIENT
  Age: 4 Decade
  Sex: Male

DRUGS (2)
  1. PEGASYS [Suspect]
     Active Substance: PEGINTERFERON ALFA-2A
     Indication: CHRONIC HEPATITIS B
     Dosage: 180 MICROGRAM, DOSE INTERVAL UNCERTAINTY
     Route: 058
  2. PEGASYS [Suspect]
     Active Substance: PEGINTERFERON ALFA-2A
     Dosage: 90 MICROGRAM, DOSE INTERVAL UNCERTAINTY
     Route: 058

REACTIONS (2)
  - Myelosuppression [Unknown]
  - Drug ineffective [Unknown]
